FAERS Safety Report 10475101 (Version 1)
Quarter: 2014Q3

REPORT INFORMATION
  Report Type: Spontaneous
  Country: US (occurrence: None)
  Receive Date: 20140924
  Receipt Date: 20140924
  Transmission Date: 20150326
  Serious: Yes (Hospitalization)
  Sender: FDA-Public Use
  Company Number: None

PATIENT
  Age: 57 Year
  Sex: Male
  Weight: 63.2 kg

DRUGS (8)
  1. ASPIRIN. [Concomitant]
     Active Substance: ASPIRIN
  2. NARCAN [Suspect]
     Active Substance: NALOXONE HYDROCHLORIDE
     Indication: SEDATION
     Route: 030
     Dates: start: 20140824, end: 20140824
  3. PREDNISONE. [Concomitant]
     Active Substance: PREDNISONE
  4. NORCO [Concomitant]
     Active Substance: ACETAMINOPHEN\HYDROCODONE BITARTRATE
  5. NORVASC [Concomitant]
     Active Substance: AMLODIPINE BESYLATE
  6. HYDROCHLOROTHIAZIDE. [Concomitant]
     Active Substance: HYDROCHLOROTHIAZIDE
  7. PREGABALIN. [Concomitant]
     Active Substance: PREGABALIN
  8. LEVETIRACETAM. [Concomitant]
     Active Substance: LEVETIRACETAM

REACTIONS (6)
  - Unresponsive to stimuli [None]
  - Eye movement disorder [None]
  - Convulsion [None]
  - Blood pressure increased [None]
  - Tachycardia [None]
  - Respiratory rate increased [None]

NARRATIVE: CASE EVENT DATE: 20140824
